FAERS Safety Report 16277866 (Version 4)
Quarter: 2019Q3

REPORT INFORMATION
  Report Type: Spontaneous
  Country: AR (occurrence: AR)
  Receive Date: 20190506
  Receipt Date: 20190712
  Transmission Date: 20191004
  Serious: Yes (Other)
  Sender: FDA-Public Use
  Company Number: AR-JNJFOC-20190445936

PATIENT
  Age: 77 Year
  Sex: Female
  Weight: 65 kg

DRUGS (5)
  1. USTEKINUMAB [Suspect]
     Active Substance: USTEKINUMAB
     Indication: PSORIASIS
     Route: 058
     Dates: start: 20181211
  2. METFORMIN [Concomitant]
     Active Substance: METFORMIN HYDROCHLORIDE
  3. FOLIC ACID. [Concomitant]
     Active Substance: FOLIC ACID
  4. METHOTREXATE. [Concomitant]
     Active Substance: METHOTREXATE
     Indication: PSORIASIS
     Route: 058
     Dates: start: 201902
  5. ENALAPRIL                          /00574902/ [Concomitant]
     Active Substance: ENALAPRIL

REACTIONS (6)
  - Palmoplantar keratoderma [Unknown]
  - Dermatitis exfoliative generalised [Unknown]
  - Pruritus generalised [Not Recovered/Not Resolved]
  - Tinea infection [Unknown]
  - Psoriasis [Not Recovered/Not Resolved]
  - Drug ineffective [Unknown]

NARRATIVE: CASE EVENT DATE: 2018
